FAERS Safety Report 16760184 (Version 2)
Quarter: 2019Q3

REPORT INFORMATION
  Report Type: Spontaneous
  Country: US (occurrence: US)
  Receive Date: 20190830
  Receipt Date: 20190927
  Transmission Date: 20191005
  Serious: No
  Sender: FDA-Public Use
  Company Number: US-PFIZER INC-2019367528

PATIENT
  Age: 68 Year
  Sex: Female
  Weight: 78.5 kg

DRUGS (1)
  1. LYRICA [Suspect]
     Active Substance: PREGABALIN
     Indication: NEURALGIA
     Dosage: 75 MG, 2X/DAY
     Route: 048
     Dates: start: 201906

REACTIONS (2)
  - Body height decreased [Unknown]
  - Peripheral swelling [Not Recovered/Not Resolved]
